FAERS Safety Report 25856324 (Version 1)
Quarter: 2025Q3

REPORT INFORMATION
  Report Type: Spontaneous
  Country: EU (occurrence: EU)
  Receive Date: 20250928
  Receipt Date: 20250928
  Transmission Date: 20251021
  Serious: Yes (Other)
  Sender: MERCK SHARP & DOHME LLC
  Company Number: EU-009507513-2331385

PATIENT
  Age: 69 Year

DRUGS (2)
  1. PEMBROLIZUMAB [Suspect]
     Active Substance: PEMBROLIZUMAB
  2. LENVATINIB [Concomitant]
     Active Substance: LENVATINIB

REACTIONS (2)
  - Cardiac dysfunction [Unknown]
  - Immune-mediated hypothyroidism [Unknown]
